FAERS Safety Report 11221812 (Version 1)
Quarter: 2015Q2

REPORT INFORMATION
  Report Type: Spontaneous
  Country: US (occurrence: US)
  Receive Date: 20150626
  Receipt Date: 20150626
  Transmission Date: 20150821
  Serious: Yes (Other)
  Sender: FDA-Public Use
  Company Number: US-PFIZER INC-2015210546

PATIENT
  Age: 75 Year
  Sex: Male
  Weight: 74 kg

DRUGS (18)
  1. PREDNISONE. [Concomitant]
     Active Substance: PREDNISONE
     Dosage: 5 MG, 2X/DAY
  2. CLOPIDOGREL [Concomitant]
     Active Substance: CLOPIDOGREL BISULFATE
  3. BABY ASPIRIN [Concomitant]
     Active Substance: ASPIRIN
  4. DIAZEPAM. [Concomitant]
     Active Substance: DIAZEPAM
  5. XELJANZ [Suspect]
     Active Substance: TOFACITINIB CITRATE
     Indication: ARTHRITIS
     Dosage: 5MG TABLET ONCE DAILY IN THE MORNING
     Dates: start: 201504
  6. OXYCODONE [Concomitant]
     Active Substance: OXYCODONE
  7. NASONEX [Concomitant]
     Active Substance: MOMETASONE FUROATE
  8. LEVOTHYROXINE [Concomitant]
     Active Substance: LEVOTHYROXINE
  9. BUPROPION [Concomitant]
     Active Substance: BUPROPION
  10. XELJANZ [Suspect]
     Active Substance: TOFACITINIB CITRATE
     Dosage: 5MG TABLET ONCE DAILY IN THE MORNING
     Dates: start: 201504
  11. HYDROCODONE [Concomitant]
     Active Substance: HYDROCODONE
  12. LEFLUNOMIDE. [Concomitant]
     Active Substance: LEFLUNOMIDE
     Dosage: 20 MG, DAILY
  13. GABAPENTIN. [Concomitant]
     Active Substance: GABAPENTIN
  14. DALIRESP [Concomitant]
     Active Substance: ROFLUMILAST
  15. SPIRIVA [Concomitant]
     Active Substance: TIOTROPIUM BROMIDE MONOHYDRATE
  16. ADVAIR HFA [Concomitant]
     Active Substance: FLUTICASONE PROPIONATE\SALMETEROL XINAFOATE
  17. POTASSIUM [Concomitant]
     Active Substance: POTASSIUM
  18. PANTOPRAZOLE [Concomitant]
     Active Substance: PANTOPRAZOLE SODIUM

REACTIONS (6)
  - Asthenia [Not Recovered/Not Resolved]
  - Fatigue [Not Recovered/Not Resolved]
  - Weight decreased [Not Recovered/Not Resolved]
  - Arterial occlusive disease [Unknown]
  - Dyspnoea [Not Recovered/Not Resolved]
  - Hypersomnia [Not Recovered/Not Resolved]

NARRATIVE: CASE EVENT DATE: 201504
